FAERS Safety Report 10426748 (Version 1)
Quarter: 2014Q3

REPORT INFORMATION
  Report Type: Report from Study
  Country: CN (occurrence: CN)
  Receive Date: 20140903
  Receipt Date: 20140903
  Transmission Date: 20150326
  Serious: Yes (Hospitalization)
  Sender: FDA-Public Use
  Company Number: CN-ASTELLAS-2014US011273

PATIENT
  Sex: Female

DRUGS (1)
  1. ERLOTINIB [Suspect]
     Active Substance: ERLOTINIB
     Indication: NON-SMALL CELL LUNG CANCER
     Route: 048
     Dates: start: 20130624

REACTIONS (9)
  - Cyst [Unknown]
  - Syncope [Recovering/Resolving]
  - Chest pain [Unknown]
  - Mouth ulceration [Unknown]
  - Productive cough [Unknown]
  - Ischaemia [Unknown]
  - Diarrhoea [Unknown]
  - Anaemia [Recovering/Resolving]
  - Central nervous system lesion [Unknown]
